FAERS Safety Report 6138788-4 (Version None)
Quarter: 2009Q1

REPORT INFORMATION
  Report Type: 
  Country: None (occurrence: None)
  Receive Date: 20090331
  Receipt Date: 20090323
  Transmission Date: 20090719
  Serious: Yes (Hospitalization)
  Sender: FDA-Public Use
  Company Number: PHHY2009FI10653

PATIENT
  Sex: Male

DRUGS (3)
  1. STALEVO 100 [Suspect]
     Dosage: 8 X 150 MG DAILY
  2. LEVODOPA [Concomitant]
     Dosage: DURING NIGHT
  3. MADOPAR QUICK [Concomitant]
     Indication: DRUG EFFECT DECREASED
     Dosage: DURING DAY

REACTIONS (5)
  - DRUG EFFECT DECREASED [None]
  - DYSPNOEA [None]
  - HYPOVENTILATION [None]
  - PANIC REACTION [None]
  - TREMOR [None]
